FAERS Safety Report 8831462 (Version 2)
Quarter: 2014Q3

REPORT INFORMATION
  Report Type: Report from Study
  Country: US (occurrence: US)
  Receive Date: 20121009
  Receipt Date: 20140909
  Transmission Date: 20150326
  Serious: Yes (Death, Hospitalization)
  Sender: FDA-Public Use
  Company Number: US-ROCHE-1130909

PATIENT
  Sex: Male

DRUGS (2)
  1. CYCLOSPORIN [Concomitant]
     Active Substance: CYCLOSPORINE
  2. RITUXAN [Suspect]
     Active Substance: RITUXIMAB
     Indication: AUTOIMMUNE HAEMOLYTIC ANAEMIA
     Dosage: TWO DOSES ON 11/MAR/2004 AND 18/MAR/2004
     Route: 042

REACTIONS (5)
  - Death [Fatal]
  - Anaemia [Unknown]
  - Off label use [Unknown]
  - Vomiting [Unknown]
  - Abdominal pain [Unknown]
